FAERS Safety Report 7452673 (Version 5)
Quarter: 2013Q2

REPORT INFORMATION
  Report Type: Report from Study
  Country: FR (occurrence: FR)
  Receive Date: 20100702
  Receipt Date: 20130507
  Transmission Date: 20140414
  Serious: Yes (Hospitalization, Other)
  Sender: FDA-Public Use
  Company Number: PHHY2010FR38350

PATIENT
  Age: 82 Year
  Sex: Female

DRUGS (2)
  1. STI571 [Suspect]
     Indication: CHRONIC MYELOID LEUKAEMIA
     Dosage: 600 MG, QD
  2. STI571 [Suspect]
     Dosage: 400 MG, QD
     Dates: start: 20040311

REACTIONS (7)
  - Gastrointestinal disorder [Recovered/Resolved]
  - Diarrhoea [Recovered/Resolved]
  - Dehydration [Recovered/Resolved]
  - Abdominal distension [Recovered/Resolved]
  - Foreign body [Recovered/Resolved]
  - Biliary dilatation [Recovered/Resolved]
  - Iron deficiency [Unknown]
